FAERS Safety Report 9164852 (Version 3)
Quarter: 2013Q2

REPORT INFORMATION
  Report Type: Spontaneous
  Country: US (occurrence: US)
  Receive Date: 20130315
  Receipt Date: 20130516
  Transmission Date: 20140414
  Serious: No
  Sender: FDA-Public Use
  Company Number: US-PFIZER INC-2013083121

PATIENT
  Age: 65 Year
  Sex: Male

DRUGS (11)
  1. INLYTA [Suspect]
     Indication: RENAL CANCER
     Dosage: 5 MG, 2X/DAY
     Dates: start: 20130122, end: 20130215
  2. INLYTA [Suspect]
     Indication: RENAL CANCER
     Dosage: 7 MG, 2X/DAY (1-5MG TWICE DAILY AND 2-1MG TABLETS TWICE DAILY)
     Route: 048
     Dates: start: 20130216
  3. LOMOTIL [Concomitant]
     Dosage: UNK
  4. FOLIC ACID [Concomitant]
     Dosage: UNK
  5. COMPAZINE [Concomitant]
     Dosage: UNK
  6. PREDNISONE [Concomitant]
     Dosage: UNK
  7. LISINOPRIL [Concomitant]
     Dosage: UNK
  8. PRAVASTATIN [Concomitant]
     Dosage: UNK
  9. CARVEDILOL [Concomitant]
     Dosage: UNK
  10. MEGACE [Concomitant]
     Dosage: UNK
     Route: 048
  11. NIFEDIAC CC [Concomitant]
     Dosage: UNK

REACTIONS (1)
  - Vision blurred [Unknown]
